FAERS Safety Report 16414196 (Version 1)
Quarter: 2019Q2

REPORT INFORMATION
  Report Type: Spontaneous
  Country: US (occurrence: US)
  Receive Date: 20190503
  Receipt Date: 20190503
  Transmission Date: 20190711
  Serious: Yes (Hospitalization)
  Sender: FDA-Public Use
  Company Number: None

PATIENT
  Age: 43 Year
  Sex: Female
  Weight: 70.3 kg

DRUGS (10)
  1. HYDROCORTISONE. [Suspect]
     Active Substance: HYDROCORTISONE
     Dates: end: 20161223
  2. METHOTREXATE. [Suspect]
     Active Substance: METHOTREXATE
     Dates: end: 20161219
  3. ETOPOSIDE. [Suspect]
     Active Substance: ETOPOSIDE
     Dates: end: 20161223
  4. MERCAPTOPURINE. [Suspect]
     Active Substance: MERCAPTOPURINE
     Dates: end: 20160926
  5. ASPARAGINASE [Suspect]
     Active Substance: ASPARAGINASE
     Dates: end: 20161223
  6. DEXAMETHASONE. [Suspect]
     Active Substance: DEXAMETHASONE
  7. CYCLOPHOSPHAMIDE. [Suspect]
     Active Substance: CYCLOPHOSPHAMIDE
     Dates: end: 20160926
  8. DAUNORUBICIN [Suspect]
     Active Substance: DAUNORUBICIN
     Dates: end: 20160722
  9. CYTARABINE. [Suspect]
     Active Substance: CYTARABINE
  10. VINCRISTINE [Suspect]
     Active Substance: VINCRISTINE
     Dates: end: 20161219

REACTIONS (5)
  - Pneumonia [None]
  - Pneumonia aspiration [None]
  - Transfusion [None]
  - Lung infiltration [None]
  - Anaemia [None]

NARRATIVE: CASE EVENT DATE: 20170105
